FAERS Safety Report 25216616 (Version 1)
Quarter: 2025Q2

REPORT INFORMATION
  Report Type: Spontaneous
  Country: LT (occurrence: LT)
  Receive Date: 20250419
  Receipt Date: 20250419
  Transmission Date: 20250717
  Serious: Yes (Death, Other)
  Sender: ACCORD
  Company Number: LT-Accord-478355

PATIENT
  Age: 19 Year
  Sex: Female

DRUGS (5)
  1. AMPHETAMINE [Suspect]
     Active Substance: AMPHETAMINE
  2. ATROPINE SULFATE [Suspect]
     Active Substance: ATROPINE SULFATE
  3. QUETIAPINE [Suspect]
     Active Substance: QUETIAPINE
  4. ETHYL ALCOHOL [Suspect]
     Active Substance: ALCOHOL
  5. SODIUM NITRATE [Suspect]
     Active Substance: SODIUM NITRATE

REACTIONS (3)
  - Multiple organ dysfunction syndrome [Fatal]
  - Intentional overdose [Fatal]
  - Suicide attempt [Fatal]
